FAERS Safety Report 6903748-X (Version None)
Quarter: 2010Q3

REPORT INFORMATION
  Report Type: 
  Country: None (occurrence: None)
  Receive Date: 20100804
  Receipt Date: 20081126
  Transmission Date: 20110219
  Serious: No
  Sender: FDA-Public Use
  Company Number: US-PFIZER INC-2008085482

PATIENT
  Sex: Male
  Weight: 79.4 kg

DRUGS (6)
  1. LYRICA [Suspect]
     Indication: HYPOAESTHESIA
     Route: 048
     Dates: start: 20080616, end: 20081001
  2. GABAPENTIN [Suspect]
     Indication: NEURITIS
  3. LISINOPRIL [Concomitant]
     Indication: HYPERTENSION
  4. DILTIAZEM [Concomitant]
     Indication: HYPERTENSION
  5. FLAXSEED OIL [Concomitant]
     Indication: BLOOD CHOLESTEROL INCREASED
  6. OMEGA-3 TRIGLYCERIDES [Concomitant]
     Indication: BLOOD CHOLESTEROL INCREASED

REACTIONS (3)
  - DISORIENTATION [None]
  - DRUG INEFFECTIVE [None]
  - EUPHORIC MOOD [None]
